FAERS Safety Report 5491023-2 (Version None)
Quarter: 2007Q4

REPORT INFORMATION
  Report Type: 
  Country: None (occurrence: None)
  Receive Date: 20071019
  Receipt Date: 20061120
  Transmission Date: 20080405
  Serious: No
  Sender: FDA-Public Use
  Company Number: US-BRISTOL-MYERS SQUIBB COMPANY-13584321

PATIENT
  Sex: Male

DRUGS (4)
  1. CAFCIT [Suspect]
     Indication: SLEEP APNOEA SYNDROME
  2. VITAMINS [Concomitant]
  3. REGLAN [Concomitant]
  4. ZANTAC [Concomitant]

REACTIONS (1)
  - UNDERDOSE [None]
